FAERS Safety Report 10016151 (Version 1)
Quarter: 2014Q1

REPORT INFORMATION
  Report Type: Spontaneous
  Country: SK (occurrence: SK)
  Receive Date: 20140317
  Receipt Date: 20140317
  Transmission Date: 20141002
  Serious: Yes (Hospitalization, Other)
  Sender: FDA-Public Use
  Company Number: SK-ACTAVIS-2014-04439

PATIENT
  Age: 67 Year
  Sex: Female

DRUGS (2)
  1. WARFARIN (UNKNOWN) [Suspect]
     Indication: ATRIAL FIBRILLATION
     Dosage: UNK
     Route: 065
  2. TRAMADOL (UNKNOWN) [Suspect]
     Indication: PAIN
     Dosage: UNK
     Route: 030

REACTIONS (1)
  - Extradural abscess [Recovered/Resolved]
